FAERS Safety Report 12714869 (Version 2)
Quarter: 2016Q4

REPORT INFORMATION
  Report Type: Report from Study
  Country: FR (occurrence: FR)
  Receive Date: 20160905
  Receipt Date: 20161026
  Transmission Date: 20170207
  Serious: Yes (Other)
  Sender: FDA-Public Use
  Company Number: FR-ROCHE-1825735

PATIENT

DRUGS (1)
  1. ALTEPLASE [Suspect]
     Active Substance: ALTEPLASE
     Indication: ISCHAEMIC STROKE
     Dosage: 0.9 MG/KG INTRAVENOUSLY WITH AN INITIAL BOLUS OF 10% OF THE TOTAL DOSE (MAXIMUM 90 MG) FOLLOWED BY I
     Route: 042

REACTIONS (1)
  - Pulmonary embolism [Unknown]
